FAERS Safety Report 10110266 (Version 1)
Quarter: 2014Q2

REPORT INFORMATION
  Report Type: Spontaneous
  Country: US (occurrence: US)
  Receive Date: 20140425
  Receipt Date: 20140425
  Transmission Date: 20141212
  Serious: Yes (Other)
  Sender: FDA-Public Use
  Company Number: US-JNJFOC-20140413864

PATIENT
  Age: 37 Year
  Sex: Male
  Weight: 128.82 kg

DRUGS (1)
  1. INVOKANA [Suspect]
     Indication: DIABETES MELLITUS
     Dates: start: 20140124, end: 20140128

REACTIONS (3)
  - Mood swings [Recovered/Resolved]
  - Bipolar I disorder [Recovered/Resolved]
  - Depression [Recovered/Resolved]
